FAERS Safety Report 25135314 (Version 1)
Quarter: 2025Q1

REPORT INFORMATION
  Report Type: Other
  Country: US (occurrence: US)
  Receive Date: 20250328
  Receipt Date: 20250328
  Transmission Date: 20250409
  Serious: Yes (Death)
  Sender: ITALFARMACO SPA
  Company Number: US-ITALFARMACO SPA-2173838

PATIENT
  Age: 31 Year
  Sex: Male
  Weight: 57.61 kg

DRUGS (15)
  1. DUVYZAT [Suspect]
     Active Substance: GIVINOSTAT
     Indication: Duchenne muscular dystrophy
     Dates: start: 20241026
  2. PREDNISONE [Concomitant]
     Active Substance: PREDNISONE
  3. LEVETIRACETAM [Concomitant]
     Active Substance: LEVETIRACETAM
  4. LANSOPRAZOLE [Concomitant]
     Active Substance: LANSOPRAZOLE
  5. CALCIUM CARBONATE WITH VITAMIN D (CHOLECALCIFEROL) [Concomitant]
     Active Substance: CALCIUM CARBONATE\CHOLECALCIFEROL
  6. VITAMIN D3 [Concomitant]
     Active Substance: CHOLECALCIFEROL
  7. POLYETHYLENE GLYCOL 3350 [Concomitant]
     Active Substance: POLYETHYLENE GLYCOL 3350
  8. MAGNESIUM OXIDE [Concomitant]
     Active Substance: MAGNESIUM OXIDE
  9. LOSARTAN [Concomitant]
     Active Substance: LOSARTAN
  10. LIDOCAINE\PRILOCAINE [Concomitant]
     Active Substance: LIDOCAINE\PRILOCAINE
  11. PROBIOTICS NOS [Concomitant]
     Active Substance: PROBIOTICS NOS
  12. IBUPROFEN [Concomitant]
     Active Substance: IBUPROFEN
  13. DULOXETINE [Concomitant]
     Active Substance: DULOXETINE
  14. CALCIUM CARBONATE [Concomitant]
     Active Substance: CALCIUM CARBONATE
  15. ACETAMINOPHEN [Concomitant]
     Active Substance: ACETAMINOPHEN

REACTIONS (8)
  - Nausea [Recovered/Resolved]
  - Death [Fatal]
  - Burning sensation [Unknown]
  - Hypoaesthesia [Unknown]
  - Contusion [Not Recovered/Not Resolved]
  - Platelet count decreased [Not Recovered/Not Resolved]
  - Blood pressure diastolic increased [Not Recovered/Not Resolved]
  - Diarrhoea [Recovered/Resolved]

NARRATIVE: CASE EVENT DATE: 20250103
